FAERS Safety Report 6793423-7 (Version None)
Quarter: 2010Q2

REPORT INFORMATION
  Report Type: 
  Country: None (occurrence: None)
  Receive Date: 20100624
  Receipt Date: 20100318
  Transmission Date: 20101027
  Serious: Yes (Other)
  Sender: FDA-Public Use
  Company Number: US-MYLANLABS-2010S1003142

PATIENT
  Age: 39 Year
  Sex: Male

DRUGS (9)
  1. CLOZAPINE [Suspect]
     Indication: SCHIZOAFFECTIVE DISORDER
     Route: 048
     Dates: end: 20100223
  2. HALDOL [Concomitant]
  3. ZOLOFT [Concomitant]
  4. TRAMADOL HCL [Concomitant]
  5. CALCIUM CARBONATE [Concomitant]
  6. COGENTIN [Concomitant]
  7. ASPIRIN [Concomitant]
  8. DOCUSATE SODIUM [Concomitant]
  9. ZANTAC [Concomitant]

REACTIONS (2)
  - GRANULOCYTOPENIA [None]
  - LEUKOPENIA [None]
